FAERS Safety Report 13365672 (Version 1)
Quarter: 2017Q1

REPORT INFORMATION
  Report Type: Spontaneous
  Country: US (occurrence: US)
  Receive Date: 20170323
  Receipt Date: 20170323
  Transmission Date: 20170429
  Serious: No
  Sender: FDA-Public Use
  Company Number: US-ALLERGAN-2016-001703

PATIENT
  Age: 89 Year
  Sex: Female

DRUGS (4)
  1. ANTIHYPERTENSIVES [Concomitant]
     Active Substance: UNSPECIFIED INGREDIENT
     Indication: HYPERTENSION
     Dosage: UNK UNK, UNKNOWN
     Route: 048
  2. ESTRACE [Suspect]
     Active Substance: ESTRADIOL
     Indication: VULVOVAGINAL DRYNESS
     Dosage: UNK, 3 TIMES PER WEEK
     Route: 067
     Dates: start: 2016
  3. ESTRACE [Suspect]
     Active Substance: ESTRADIOL
     Indication: URINARY TRACT INFECTION
  4. ESTRACE [Suspect]
     Active Substance: ESTRADIOL
     Indication: CYSTITIS

REACTIONS (5)
  - Rash generalised [Not Recovered/Not Resolved]
  - Product use issue [Unknown]
  - Wrong technique in product usage process [Unknown]
  - Pruritus [Not Recovered/Not Resolved]
  - Alopecia [Not Recovered/Not Resolved]

NARRATIVE: CASE EVENT DATE: 20160724
